FAERS Safety Report 20914262 (Version 6)
Quarter: 2022Q3

REPORT INFORMATION
  Report Type: Spontaneous
  Country: US (occurrence: US)
  Receive Date: 20220604
  Receipt Date: 20220902
  Transmission Date: 20221027
  Serious: Yes (Hospitalization, Other)
  Sender: FDA-Public Use
  Company Number: US-AMGEN-USASP2022096236

PATIENT
  Age: 71 Year
  Sex: Male
  Weight: 75 kg

DRUGS (4)
  1. CARFILZOMIB [Suspect]
     Active Substance: CARFILZOMIB
     Indication: Plasma cell myeloma
     Dosage: 39 MILLIGRAM, 20 MG/M2
     Route: 065
     Dates: start: 201309
  2. CARFILZOMIB [Suspect]
     Active Substance: CARFILZOMIB
     Dosage: 39 MILLIGRAM, 15 MG/M2
     Route: 065
     Dates: start: 201309
  3. REVLIMID [Suspect]
     Active Substance: LENALIDOMIDE
     Indication: Product used for unknown indication
     Dosage: 50 MILLIGRAM, DAYS1-21
     Route: 048
     Dates: start: 20220321
  4. VORINOSTAT [Suspect]
     Active Substance: VORINOSTAT
     Indication: Product used for unknown indication
     Dosage: 100 MILLIGRAM, DAY 1-5, 15-21, CYCLE 99
     Route: 048
     Dates: start: 20220321, end: 20220327

REACTIONS (7)
  - Incision site discharge [Unknown]
  - Aortic valve replacement [Unknown]
  - Arteriovenous fistula operation [Unknown]
  - Non-cardiac chest pain [Recovered/Resolved]
  - Postoperative wound complication [Recovered/Resolved]
  - Lymphocele [Recovered/Resolved]
  - Herpes zoster [Recovered/Resolved]

NARRATIVE: CASE EVENT DATE: 20220216
